FAERS Safety Report 9528366 (Version 1)
Quarter: 2013Q3

REPORT INFORMATION
  Report Type: Spontaneous
  Country: US (occurrence: US)
  Receive Date: 20130917
  Receipt Date: 20130917
  Transmission Date: 20140515
  Serious: No
  Sender: FDA-Public Use
  Company Number: US-TEVA-432360USA

PATIENT
  Age: 70 Year
  Sex: Male
  Weight: 128.94 kg

DRUGS (4)
  1. PROAIR HFA [Suspect]
     Indication: WHEEZING
     Route: 055
     Dates: start: 2013, end: 20130911
  2. PROAIR HFA [Suspect]
     Indication: DYSPNOEA
  3. CHERATUSSIN [Concomitant]
     Dates: start: 2013
  4. METAMUCIL [Concomitant]
     Dates: start: 2013

REACTIONS (2)
  - Skin burning sensation [Not Recovered/Not Resolved]
  - Pruritus [Not Recovered/Not Resolved]
